FAERS Safety Report 8225147-3 (Version None)
Quarter: 2012Q1

REPORT INFORMATION
  Report Type: 
  Country: None (occurrence: None)
  Receive Date: 20120321
  Receipt Date: 20120313
  Transmission Date: 20120608
  Serious: Yes (Hospitalization, Other)
  Sender: FDA-Public Use
  Company Number: IN-SANOFI-AVENTIS-2011SA059702

PATIENT
  Age: 61 Year
  Sex: Male

DRUGS (8)
  1. METFORMIN HCL [Concomitant]
  2. ATENOLOL AND CHLORTHALIDONE [Suspect]
     Route: 048
  3. HMG COA REDUCTASE INHIBITORS [Concomitant]
     Dates: start: 20110608
  4. ANGIOTENSIN II ANTAGONISTS [Concomitant]
  5. BETA BLOCKING AGENTS [Concomitant]
  6. DIURETICS [Concomitant]
  7. GLIMEPIRIDE [Concomitant]
  8. ASPIRIN [Suspect]
     Route: 048

REACTIONS (2)
  - ANAEMIA [None]
  - FATIGUE [None]
